FAERS Safety Report 14867557 (Version 1)
Quarter: 2018Q2

REPORT INFORMATION
  Report Type: Spontaneous
  Country: US (occurrence: US)
  Receive Date: 20180508
  Receipt Date: 20180508
  Transmission Date: 20180711
  Serious: Yes (Other)
  Sender: FDA-Public Use
  Company Number: PHEH2018US016220

PATIENT
  Age: 60 Year
  Sex: Female

DRUGS (1)
  1. PROMACTA [Suspect]
     Active Substance: ELTROMBOPAG OLAMINE
     Indication: APLASTIC ANAEMIA
     Dosage: 150 MG, QD
     Route: 048
     Dates: start: 20171228

REACTIONS (3)
  - Cough [Unknown]
  - Respiratory tract infection [Unknown]
  - Alopecia [Unknown]

NARRATIVE: CASE EVENT DATE: 20180424
